FAERS Safety Report 5102596-3 (Version None)
Quarter: 2006Q3

REPORT INFORMATION
  Report Type: 
  Country: None (occurrence: None)
  Receive Date: 20060907
  Receipt Date: 20060825
  Transmission Date: 20061208
  Serious: Yes (Hospitalization)
  Sender: FDA-Public Use
  Company Number: 2006101778

PATIENT
  Age: 55 Year
  Sex: Male

DRUGS (1)
  1. SUTENT [Suspect]
     Indication: METASTATIC RENAL CELL CARCINOMA
     Dosage: UNK (50 MG, 1 IN 1 D); ORAL
     Route: 048
     Dates: start: 20060714, end: 20060810

REACTIONS (4)
  - DEHYDRATION [None]
  - DELAYED EFFECTS OF RADIATION [None]
  - JAUNDICE [None]
  - THYROID FUNCTION TEST ABNORMAL [None]
